FAERS Safety Report 21046465 (Version 1)
Quarter: 2022Q3

REPORT INFORMATION
  Report Type: Spontaneous
  Country: US (occurrence: US)
  Receive Date: 20220706
  Receipt Date: 20220706
  Transmission Date: 20221026
  Serious: No
  Sender: FDA-Public Use
  Company Number: US-ALLERGAN-2213429US

PATIENT
  Sex: Female

DRUGS (1)
  1. UBRELVY [Suspect]
     Active Substance: UBROGEPANT
     Indication: Migraine
     Dosage: UNK, SINGLE
     Dates: start: 202204, end: 202204

REACTIONS (4)
  - Vascular injury [Recovering/Resolving]
  - Swelling [Recovering/Resolving]
  - Pruritus [Recovering/Resolving]
  - Burning sensation [Recovering/Resolving]

NARRATIVE: CASE EVENT DATE: 20220401
